FAERS Safety Report 8258913-9 (Version None)
Quarter: 2012Q2

REPORT INFORMATION
  Report Type: 
  Country: None (occurrence: None)
  Receive Date: 20120404
  Receipt Date: 20120326
  Transmission Date: 20120825
  Serious: Yes (Hospitalization)
  Sender: FDA-Public Use
  Company Number: US-ELI_LILLY_AND_COMPANY-US201106004238

PATIENT
  Sex: Female

DRUGS (7)
  1. CALCIUM CARBONATE [Concomitant]
  2. VITAMIN D [Concomitant]
  3. MULTI-VITAMIN [Concomitant]
  4. LEVOXYL [Concomitant]
  5. CITALOPRAM HYDROBROMIDE [Concomitant]
     Dosage: UNK, QD
  6. FORTEO [Suspect]
     Dosage: 20 UG, QD
     Route: 065
  7. FORTEO [Suspect]
     Indication: OSTEOPOROSIS
     Dosage: 20 UG, QD
     Route: 065
     Dates: start: 20110520

REACTIONS (4)
  - EXOSTOSIS [None]
  - SPINAL OPERATION [None]
  - BONE DENSITY DECREASED [None]
  - VERTEBROPLASTY [None]
